FAERS Safety Report 10373903 (Version 1)
Quarter: 2014Q3

REPORT INFORMATION
  Report Type: Report from Study
  Country: BR (occurrence: BR)
  Receive Date: 20140809
  Receipt Date: 20140809
  Transmission Date: 20150326
  Serious: Yes (Other)
  Sender: FDA-Public Use
  Company Number: PHHY2014BR097776

PATIENT
  Sex: Female
  Weight: 55 kg

DRUGS (4)
  1. DIOVAN [Suspect]
     Active Substance: VALSARTAN
     Indication: HYPERTENSION
     Dosage: 1 DF, A DAY
     Route: 048
  2. RIVOTRIL [Concomitant]
     Active Substance: CLONAZEPAM
     Indication: SLEEP DISORDER
     Dosage: UNK UKN, UNK
  3. OLCADIL [Concomitant]
     Active Substance: CLOXAZOLAM
     Dosage: UNK UKN, UNK
  4. ENALAPRIL [Suspect]
     Active Substance: ENALAPRIL
     Indication: HYPERTENSION
     Dosage: 2 DF, A DAY
     Route: 048

REACTIONS (8)
  - Cataract [Unknown]
  - Visual impairment [Unknown]
  - Cerebrovascular accident [Unknown]
  - Headache [Unknown]
  - Memory impairment [Unknown]
  - Dyspepsia [Unknown]
  - Helicobacter infection [Unknown]
  - Hypertension [Unknown]
